FAERS Safety Report 22194797 (Version 4)
Quarter: 2023Q4

REPORT INFORMATION
  Report Type: Spontaneous
  Country: CN (occurrence: CN)
  Receive Date: 20230411
  Receipt Date: 20231208
  Transmission Date: 20240110
  Serious: Yes (Hospitalization)
  Sender: FDA-Public Use
  Company Number: CN-ROCHE-3321126

PATIENT
  Age: 44 Year
  Sex: Male
  Weight: 70 kg

DRUGS (53)
  1. CAPECITABINE [Suspect]
     Active Substance: CAPECITABINE
     Indication: Oesophageal adenocarcinoma
     Dosage: D1-14, BID?DAILY DOSE: 4000 MILLIGRAM
     Route: 048
     Dates: start: 20220817
  2. ATEZOLIZUMAB [Suspect]
     Active Substance: ATEZOLIZUMAB
     Indication: Oesophageal adenocarcinoma
     Dosage: INTRAVENOUS DRIP
     Route: 042
     Dates: start: 20220816
  3. TRASTUZUMAB [Suspect]
     Active Substance: TRASTUZUMAB
     Indication: Oesophageal adenocarcinoma
     Dosage: INTRAVENOUS DRIP
     Route: 042
     Dates: start: 20220816
  4. OXALIPLATIN [Suspect]
     Active Substance: OXALIPLATIN
     Indication: Oesophageal adenocarcinoma
     Dosage: INTRAVENOUS DRIP
     Route: 042
     Dates: start: 20220816
  5. SODIUM CHLORIDE [Concomitant]
     Active Substance: SODIUM CHLORIDE
     Dosage: BID?DAILY DOSE: 20 MILLILITRE
     Route: 042
     Dates: start: 20220810, end: 20220816
  6. SODIUM CHLORIDE [Concomitant]
     Active Substance: SODIUM CHLORIDE
     Dosage: DAILY DOSE: 250 MILLILITRE
     Route: 042
     Dates: start: 20220927, end: 20220927
  7. SODIUM CHLORIDE [Concomitant]
     Active Substance: SODIUM CHLORIDE
     Dosage: SUBSEQUENT DOSE ON 18/NOV/2022 TO 22/NOV/2022
     Route: 042
     Dates: start: 20221115, end: 20221116
  8. ESOMEPRAZOLE SODIUM [Concomitant]
     Active Substance: ESOMEPRAZOLE SODIUM
     Dosage: DAILY DOSE: 80 MILLIGRAM
     Route: 042
     Dates: start: 20220810, end: 20220816
  9. FLURBIPROFEN AXETIL [Concomitant]
     Active Substance: FLURBIPROFEN AXETIL
     Dosage: SUBSEQUENT DOSE ON 15/NOV/2022 TO 16/NOV/2022, 16/NOV/2022 TO 17/NOV/2022?DAILY DOSE: 100 MILLIGRAM
     Route: 042
     Dates: start: 20220810, end: 20220816
  10. FLURBIPROFEN AXETIL [Concomitant]
     Active Substance: FLURBIPROFEN AXETIL
     Route: 042
     Dates: start: 20221115, end: 20221116
  11. DEXAMETHASONE SODIUM PHOSPHATE [Concomitant]
     Active Substance: DEXAMETHASONE PHOSPHATE\DEXAMETHASONE SODIUM PHOSPHATE
     Dosage: DAILY DOSE: 10 MILLIGRAM
     Route: 042
     Dates: start: 20220816, end: 20220816
  12. DEXAMETHASONE SODIUM PHOSPHATE [Concomitant]
     Active Substance: DEXAMETHASONE PHOSPHATE\DEXAMETHASONE SODIUM PHOSPHATE
     Dosage: DAILY DOSE: 10 MILLIGRAM
     Route: 042
     Dates: start: 20220906, end: 20220906
  13. DEXAMETHASONE SODIUM PHOSPHATE [Concomitant]
     Active Substance: DEXAMETHASONE PHOSPHATE\DEXAMETHASONE SODIUM PHOSPHATE
     Dosage: DAILY DOSE: 2 MILLILITRE
     Route: 042
     Dates: start: 20220927, end: 20220927
  14. DEXAMETHASONE SODIUM PHOSPHATE [Concomitant]
     Active Substance: DEXAMETHASONE PHOSPHATE\DEXAMETHASONE SODIUM PHOSPHATE
     Dosage: DAILY DOSE: 2 MILLILITRE
     Route: 042
     Dates: start: 20230207, end: 20230207
  15. DEXAMETHASONE SODIUM PHOSPHATE [Concomitant]
     Active Substance: DEXAMETHASONE PHOSPHATE\DEXAMETHASONE SODIUM PHOSPHATE
     Dosage: DAILY DOSE: 10 MILLIGRAM
     Route: 042
     Dates: start: 20230613
  16. TROPISETRON HYDROCHLORIDE AND GLUCOSE [Concomitant]
     Dosage: DAILY DOSE: 100 MILLILITRE
     Route: 042
     Dates: start: 20220816, end: 20220816
  17. TROPISETRON HYDROCHLORIDE AND GLUCOSE [Concomitant]
     Dosage: DAILY DOSE: 100 MILLILITRE
     Route: 042
     Dates: start: 20220906, end: 20220906
  18. TROPISETRON HYDROCHLORIDE AND GLUCOSE [Concomitant]
     Dosage: DAILY DOSE: 100 MILLILITRE
     Route: 042
     Dates: start: 20220927, end: 20220927
  19. TROPISETRON HYDROCHLORIDE AND GLUCOSE [Concomitant]
     Dosage: DAILY DOSE: 100 MILLILITRE
     Route: 042
     Dates: start: 20230207, end: 20230207
  20. MEGESTROL ACETATE [Concomitant]
     Active Substance: MEGESTROL ACETATE
     Dosage: DAILY DOSE: 80 MILLIGRAM
     Route: 048
     Dates: start: 20220816, end: 20220816
  21. MEGESTROL ACETATE [Concomitant]
     Active Substance: MEGESTROL ACETATE
     Dosage: DAILY DOSE: 80 MILLIGRAM
     Route: 048
     Dates: start: 20230307, end: 20230307
  22. OMEPRAZOLE [Concomitant]
     Active Substance: OMEPRAZOLE
     Dosage: DAILY DOSE: 20 MILLIGRAM
     Route: 048
     Dates: start: 20220816, end: 20220816
  23. OMEPRAZOLE [Concomitant]
     Active Substance: OMEPRAZOLE
     Dosage: DAILY DOSE: 20 MILLIGRAM
     Route: 048
     Dates: start: 20230307
  24. APREPITANT [Concomitant]
     Active Substance: APREPITANT
     Dosage: DAILY DOSE: 125 MILLIGRAM
     Route: 048
     Dates: start: 20220927, end: 20220927
  25. MAGNESIUM ISOGLYCYRRHIZINATE [Concomitant]
     Active Substance: MAGNESIUM ISOGLYCYRRHIZINATE
     Dosage: DAILY DOSE: 30 MILLILITRE
     Route: 042
     Dates: start: 20220927, end: 20220927
  26. GLUTATHIONE [Concomitant]
     Active Substance: GLUTATHIONE
     Dosage: DAILY DOSE: 1 GRAM
     Route: 042
     Dates: start: 20220927, end: 20220927
  27. CLINDAMYCIN HYDROCHLORIDE [Concomitant]
     Active Substance: CLINDAMYCIN HYDROCHLORIDE
     Indication: Haemorrhoids
     Route: 042
     Dates: start: 20221113, end: 20221113
  28. CLINDAMYCIN HYDROCHLORIDE [Concomitant]
     Active Substance: CLINDAMYCIN HYDROCHLORIDE
     Indication: Haemorrhoids
     Dosage: DAILY DOSE: 1.2 GRAM
     Dates: start: 20221215, end: 20221216
  29. RIBAVIRIN [Concomitant]
     Active Substance: RIBAVIRIN
     Indication: Haemorrhoids
     Dosage: DAILY DOSE: 0.5 GRAM
     Route: 042
     Dates: start: 20221215, end: 20221216
  30. VITAMIN C [Concomitant]
     Active Substance: ASCORBIC ACID
     Route: 042
     Dates: start: 20221115, end: 20221116
  31. VITAMIN C [Concomitant]
     Active Substance: ASCORBIC ACID
     Route: 042
     Dates: start: 20221118, end: 20221122
  32. VITAMIN C [Concomitant]
     Active Substance: ASCORBIC ACID
     Dosage: DAILY DOSE: 1 GRAM
     Route: 042
     Dates: start: 20221215, end: 20221216
  33. AMBROXOL HYDROCHLORIDE [Concomitant]
     Active Substance: AMBROXOL HYDROCHLORIDE
     Indication: Haemorrhoids
     Dosage: DAILY DOSE: 60 MILLIGRAM
     Route: 042
     Dates: start: 20221115, end: 20221116
  34. AMBROXOL HYDROCHLORIDE [Concomitant]
     Active Substance: AMBROXOL HYDROCHLORIDE
     Indication: Haemorrhoids
     Dosage: DAILY DOSE: 60 MILLIGRAM
     Route: 042
     Dates: start: 20221116, end: 20221117
  35. AMBROXOL HYDROCHLORIDE [Concomitant]
     Active Substance: AMBROXOL HYDROCHLORIDE
     Indication: Haemorrhoids
     Dosage: DAILY DOSE: 200 MILLILITRE
     Route: 042
     Dates: start: 20221215, end: 20221215
  36. Compound Nutrition [Concomitant]
     Dosage: DAILY DOSE: 2 GRAM
     Route: 048
     Dates: start: 20230208
  37. GRANULOCYTE COLONY-STIMULATING FACTOR NOS [Concomitant]
     Active Substance: GRANULOCYTE COLONY-STIMULATING FACTOR NOS
     Dosage: DAILY DOSE: 300 MICROGRAM
     Route: 058
     Dates: start: 20220816, end: 20220816
  38. GRANULOCYTE COLONY-STIMULATING FACTOR NOS [Concomitant]
     Active Substance: GRANULOCYTE COLONY-STIMULATING FACTOR NOS
     Dosage: DAILY DOSE: 300 MICROGRAM
     Route: 058
     Dates: start: 20220906, end: 20220907
  39. OMEPRAZOLE MAGNESIUM [Concomitant]
     Active Substance: OMEPRAZOLE MAGNESIUM
     Route: 048
     Dates: start: 20221109, end: 20221113
  40. SUCRALFATE [Concomitant]
     Active Substance: SUCRALFATE
     Dosage: DAILY DOSE: 30 MILLIGRAM
     Route: 048
     Dates: start: 20221109, end: 20221113
  41. INTRALIPID [Concomitant]
     Active Substance: EGG PHOSPHOLIPIDS\GLYCERIN\SOYBEAN OIL
     Route: 042
     Dates: start: 20221115, end: 20221116
  42. INTRALIPID [Concomitant]
     Active Substance: EGG PHOSPHOLIPIDS\GLYCERIN\SOYBEAN OIL
     Route: 042
     Dates: start: 20221118, end: 20221122
  43. INSULIN NOS [Concomitant]
     Active Substance: INSULIN NOS
     Dosage: SUBSEQUENT DOSE ON 18/NOV/2022 TO 22/NOV/2022
     Route: 042
     Dates: start: 20221115, end: 20221116
  44. DEXTROSE [Concomitant]
     Active Substance: DEXTROSE\DEXTROSE MONOHYDRATE
     Dosage: SUBSEQUENT DOSE ON 18/NOV/2022 TO 22/NOV/2022
     Route: 042
     Dates: start: 20221115, end: 20221116
  45. POTASSIUM CHLORIDE [Concomitant]
     Active Substance: POTASSIUM CHLORIDE
     Route: 042
     Dates: start: 20221113, end: 20221113
  46. POTASSIUM CHLORIDE [Concomitant]
     Active Substance: POTASSIUM CHLORIDE
     Route: 042
     Dates: start: 20221115, end: 20221116
  47. CALCIUM GLUCONATE [Concomitant]
     Active Substance: CALCIUM GLUCONATE
     Route: 042
     Dates: start: 20221115, end: 20221116
  48. MAGNESIUM SULFATE [Concomitant]
     Active Substance: MAGNESIUM SULFATE\MAGNESIUM SULFATE HEPTAHYDRATE
     Route: 042
     Dates: start: 20221115, end: 20221116
  49. AMOMUM SPP. FRUIT [Concomitant]
     Dosage: 2 TIMES IN 1 DAY; 2 OTHER
     Route: 048
     Dates: start: 20230118, end: 20230125
  50. CEFOPERAZONE [Concomitant]
     Active Substance: CEFOPERAZONE
     Route: 042
     Dates: start: 20221118, end: 20221122
  51. AMLODIPINE [Concomitant]
     Active Substance: AMLODIPINE BESYLATE
     Route: 048
     Dates: start: 20221119, end: 20221123
  52. BARIUM SULFATE [Concomitant]
     Active Substance: BARIUM SULFATE
     Route: 048
     Dates: start: 20221111, end: 20221111
  53. POLYETHYLENE GLYCOL [Concomitant]
     Active Substance: POLYETHYLENE GLYCOL
     Route: 048
     Dates: start: 20221113, end: 20221113

REACTIONS (1)
  - Haemorrhoids [Recovered/Resolved]

NARRATIVE: CASE EVENT DATE: 20230201
